FAERS Safety Report 20747757 (Version 1)
Quarter: 2022Q2

REPORT INFORMATION
  Report Type: Spontaneous
  Country: CN (occurrence: CN)
  Receive Date: 20220425
  Receipt Date: 20220425
  Transmission Date: 20220721
  Serious: Yes (Hospitalization)
  Sender: FDA-Public Use
  Company Number: CN-SA-2022SA130925

PATIENT
  Age: 34 Year
  Sex: Male

DRUGS (7)
  1. INSULIN LISPRO [Suspect]
     Active Substance: INSULIN LISPRO
     Indication: Immune tolerance induction
     Route: 058
  2. NPH INSULIN [Suspect]
     Active Substance: INSULIN BEEF
     Indication: Diabetic ketoacidosis
     Dosage: 10 U AT BEDTIME
     Route: 058
  3. INSULIN LISPRO [Suspect]
     Active Substance: INSULIN LISPRO
     Indication: Immune tolerance induction
     Dosage: PUMP
  4. INSULIN DETEMIR [Suspect]
     Active Substance: INSULIN DETEMIR
     Indication: Immune tolerance induction
     Route: 058
  5. INSULIN DETEMIR [Concomitant]
     Active Substance: INSULIN DETEMIR
     Indication: Immune tolerance induction
     Dosage: 4 U, HS
     Route: 058
  6. PIOGLITAZONE [Concomitant]
     Active Substance: PIOGLITAZONE
     Indication: Diabetes mellitus
     Dosage: 15 MG, QD
  7. ACARBOSE [Concomitant]
     Active Substance: ACARBOSE
     Indication: Diabetes mellitus
     Dosage: 50 MG BEFORE BREAKFAST

REACTIONS (5)
  - Drug hypersensitivity [Recovered/Resolved]
  - Pruritus [Recovered/Resolved]
  - Rash [Recovered/Resolved]
  - Injection site atrophy [Recovered/Resolved]
  - Insulin autoimmune syndrome [Recovered/Resolved]
